FAERS Safety Report 14206716 (Version 2)
Quarter: 2018Q2

REPORT INFORMATION
  Report Type: Spontaneous
  Country: CA (occurrence: CA)
  Receive Date: 20171121
  Receipt Date: 20180505
  Transmission Date: 20180711
  Serious: No
  Sender: FDA-Public Use
  Company Number: CA-AUROBINDO-AUR-APL-2017-43607

PATIENT
  Age: 72 Year
  Sex: Female

DRUGS (2)
  1. ESBRIET [Suspect]
     Active Substance: PIRFENIDONE
     Indication: IDIOPATHIC PULMONARY FIBROSIS
     Dosage: 534 MG, 3 TIMES A DAY
     Route: 048
     Dates: start: 20170812
  2. AURO-MIRTAZAPINE [Suspect]
     Active Substance: MIRTAZAPINE
     Indication: INSOMNIA
     Dosage: 30 MG, UNK
     Route: 065
     Dates: start: 201710, end: 201710

REACTIONS (5)
  - Drug ineffective [Not Recovered/Not Resolved]
  - Drug interaction [Unknown]
  - Erythema [Recovered/Resolved]
  - Rash [Recovered/Resolved]
  - Pruritus [Recovered/Resolved]

NARRATIVE: CASE EVENT DATE: 201710
